FAERS Safety Report 5385755-4 (Version None)
Quarter: 2007Q3

REPORT INFORMATION
  Report Type: 
  Country: None (occurrence: None)
  Receive Date: 20070712
  Receipt Date: 20070703
  Transmission Date: 20080115
  Serious: Yes (Other)
  Sender: FDA-Public Use
  Company Number: JP-PFIZER INC-2007055152

PATIENT
  Age: 11 Year
  Sex: Female

DRUGS (3)
  1. METHYLPREDNISOLONE [Suspect]
     Indication: GLOMERULONEPHRITIS PROLIFERATIVE
  2. PREDNISOLONE [Suspect]
     Indication: GLOMERULONEPHRITIS PROLIFERATIVE
  3. ALL OTHER THERAPEUTIC PRODUCTS [Concomitant]

REACTIONS (2)
  - BLOOD PRESSURE INCREASED [None]
  - ENCEPHALOPATHY [None]
